FAERS Safety Report 5704647-1 (Version None)
Quarter: 2008Q2

REPORT INFORMATION
  Report Type: 
  Country: None (occurrence: None)
  Receive Date: 20080414
  Receipt Date: 20080328
  Transmission Date: 20081010
  Serious: Yes (Hospitalization)
  Sender: FDA-Public Use
  Company Number: AT-ASTRAZENECA-2008SE01878

PATIENT
  Age: 68 Year
  Sex: Male

DRUGS (1)
  1. BLOPRESS [Suspect]
     Indication: ESSENTIAL HYPERTENSION
     Route: 048
     Dates: start: 19980625

REACTIONS (1)
  - HYPERTENSIVE CRISIS [None]
